FAERS Safety Report 7295134-0 (Version None)
Quarter: 2011Q1

REPORT INFORMATION
  Report Type: 
  Country: None (occurrence: None)
  Receive Date: 20110216
  Receipt Date: 20110204
  Transmission Date: 20110831
  Serious: Yes (Hospitalization)
  Sender: FDA-Public Use
  Company Number: FR-SANOFI-AVENTIS-2011SA005317

PATIENT
  Age: 66 Year
  Sex: Female
  Weight: 70 kg

DRUGS (6)
  1. COAPROVEL [Concomitant]
     Route: 048
  2. CORDARONE [Concomitant]
     Route: 048
     Dates: end: 20101104
  3. BISOPROLOL FUMARATE [Concomitant]
     Route: 048
  4. CRESTOR [Concomitant]
     Route: 048
  5. PREVISCAN [Concomitant]
     Route: 048
     Dates: end: 20101116
  6. MULTAQ [Suspect]
     Route: 048
     Dates: start: 20101105, end: 20101116

REACTIONS (3)
  - CHOLANGITIS [None]
  - JAUNDICE CHOLESTATIC [None]
  - CYTOLYTIC HEPATITIS [None]
